FAERS Safety Report 6899646-0 (Version None)
Quarter: 2010Q3

REPORT INFORMATION
  Report Type: 
  Country: None (occurrence: None)
  Receive Date: 20100803
  Receipt Date: 20100730
  Transmission Date: 20110219
  Serious: Yes (Death)
  Sender: FDA-Public Use
  Company Number: US-ASTRAZENECA-2010SE35718

PATIENT
  Age: 27992 Day
  Sex: Male

DRUGS (24)
  1. ATACAND [Suspect]
     Indication: HYPERTENSION
     Route: 048
     Dates: start: 20080229
  2. ASPIRIN [Concomitant]
  3. METOPROLOL TARTRATE [Concomitant]
  4. CLONIDINE [Concomitant]
  5. GLUCOPHAGE [Concomitant]
  6. TERAZOSIN HCL [Concomitant]
  7. SIMVASTATIN [Concomitant]
  8. PRILOSEC [Concomitant]
  9. SYNTHROID [Concomitant]
  10. ZESTRIL [Concomitant]
  11. MULTI-VITAMINS [Concomitant]
  12. VITAMIN B COMPLEX CAP [Concomitant]
  13. ASCORBIC ACID [Concomitant]
  14. FOLIC ACID [Concomitant]
  15. COENZYME Q10 [Concomitant]
  16. IMDUR [Concomitant]
  17. PLAVIX [Concomitant]
  18. HYDROCHLOROTHIAZIDE [Concomitant]
  19. PRIMROSE OIL [Concomitant]
  20. BREWERS YEAST [Concomitant]
  21. SOY [Concomitant]
  22. ALPHA LIPOIC ACID [Concomitant]
  23. GARLIC [Concomitant]
  24. SAW PALMETTO [Concomitant]

REACTIONS (1)
  - DEATH [None]
